FAERS Safety Report 4867353-1 (Version None)
Quarter: 2005Q4

REPORT INFORMATION
  Report Type: 
  Country: None (occurrence: None)
  Receive Date: 20051222
  Receipt Date: 20051209
  Transmission Date: 20060501
  Serious: Yes (Other)
  Sender: FDA-Public Use
  Company Number: 2005167736

PATIENT
  Sex: Male
  Weight: 55.3388 kg

DRUGS (10)
  1. VIAGRA [Suspect]
     Indication: ERECTILE DYSFUNCTION
     Dosage: 50 MG (50  MG, AS NECESSARY), ORAL
     Route: 048
  2. ALLOPURINOL [Concomitant]
  3. METOPROLOL SUCCINATE [Concomitant]
  4. NIFEDIPINE [Concomitant]
  5. EPOGEN [Concomitant]
  6. LANTHANUM CARBONATE (LANTHANUM CARBONATE) [Concomitant]
  7. PLAVIX [Concomitant]
  8. CHONDROITIN/GLUCOSAMINE (CHONDROITIN, GLUCOSAMINE) [Concomitant]
  9. VITAMIN B COMPLEX WITH C (ASCORBIC ACID, CALCIUM PANTOTHENATE, CYANOCO [Concomitant]
  10. FOLIC ACID [Concomitant]

REACTIONS (7)
  - CELLULITIS [None]
  - DRUG INEFFECTIVE [None]
  - GLOBAL AMNESIA [None]
  - INJURY [None]
  - MONARTHRITIS [None]
  - SCAB [None]
  - STAPHYLOCOCCAL INFECTION [None]
